FAERS Safety Report 17644646 (Version 1)
Quarter: 2020Q2

REPORT INFORMATION
  Report Type: Spontaneous
  Country: US (occurrence: US)
  Receive Date: 20200408
  Receipt Date: 20200408
  Transmission Date: 20200713
  Serious: No
  Sender: FDA-Public Use
  Company Number: None

PATIENT
  Age: 45 Year
  Sex: Female

DRUGS (1)
  1. SEROSTIM [Suspect]
     Active Substance: SOMATROPIN
     Route: 058
     Dates: start: 202002

REACTIONS (4)
  - Decreased appetite [None]
  - Weight decreased [None]
  - Asthenia [None]
  - Incorrect dose administered by device [None]

NARRATIVE: CASE EVENT DATE: 20200208
